FAERS Safety Report 16277759 (Version 1)
Quarter: 2019Q2

REPORT INFORMATION
  Report Type: Spontaneous
  Country: None (occurrence: GB)
  Receive Date: 20190506
  Receipt Date: 20190506
  Transmission Date: 20190711
  Serious: Yes (Other)
  Sender: FDA-Public Use
  Company Number: GB-LABORATOIRE HRA PHARMA-2066670

PATIENT
  Sex: Female

DRUGS (1)
  1. ELLA [Suspect]
     Active Substance: ULIPRISTAL ACETATE
     Indication: POST COITAL CONTRACEPTION
     Dates: start: 20190227, end: 20190227

REACTIONS (2)
  - Abortion spontaneous [None]
  - Unintended pregnancy [None]
